FAERS Safety Report 5382712-9 (Version None)
Quarter: 2007Q3

REPORT INFORMATION
  Report Type: 
  Country: None (occurrence: None)
  Receive Date: 20070710
  Receipt Date: 20070627
  Transmission Date: 20080115
  Serious: Yes (Hospitalization)
  Sender: FDA-Public Use
  Company Number: FR-ROCHE-501581

PATIENT
  Age: 10 Year
  Sex: Male
  Weight: 30 kg

DRUGS (4)
  1. CELLCEPT [Suspect]
     Indication: PROPHYLAXIS AGAINST TRANSPLANT REJECTION
     Route: 042
  2. CYMEVAN [Concomitant]
     Route: 042
  3. ANTI-TNF NOS [Concomitant]
     Indication: PROPHYLAXIS AGAINST TRANSPLANT REJECTION
     Dates: start: 20070301
  4. SOLU-MEDROL [Concomitant]
     Indication: PROPHYLAXIS AGAINST TRANSPLANT REJECTION

REACTIONS (3)
  - ARRHYTHMIA [None]
  - CHOLESTASIS [None]
  - PANCREATITIS [None]
